FAERS Safety Report 13836240 (Version 1)
Quarter: 2017Q3

REPORT INFORMATION
  Report Type: Report from Study
  Country: US (occurrence: US)
  Receive Date: 20170804
  Receipt Date: 20170804
  Transmission Date: 20171127
  Serious: Yes (Hospitalization, Other)
  Sender: FDA-Public Use
  Company Number: US-SHIRE-US201717297

PATIENT
  Sex: Male

DRUGS (1)
  1. HUMAN NORMAL IMMUNOGLOBULIN; LIQUID [Suspect]
     Active Substance: HUMAN IMMUNOGLOBULIN G
     Indication: PRIMARY IMMUNODEFICIENCY SYNDROME
     Dosage: UNK,LAST INFUSION PRIOR TO THE EVENT
     Route: 042
     Dates: start: 201705

REACTIONS (3)
  - Cerebral venous thrombosis [Unknown]
  - Headache [Unknown]
  - Lethargy [Unknown]
